FAERS Safety Report 8429890-2 (Version None)
Quarter: 2012Q2

REPORT INFORMATION
  Report Type: 
  Country: None (occurrence: None)
  Receive Date: 20120612
  Receipt Date: 20120601
  Transmission Date: 20120825
  Serious: Yes (Other)
  Sender: FDA-Public Use
  Company Number: JP-ASTRAZENECA-2012SE31298

PATIENT
  Age: 83 Year
  Sex: Male
  Weight: 53.9 kg

DRUGS (10)
  1. GOODMIN [Concomitant]
     Indication: INSOMNIA
  2. SEROQUEL [Suspect]
     Route: 048
     Dates: end: 20120410
  3. SEROQUEL [Suspect]
     Route: 048
     Dates: end: 20120410
  4. UBRETID [Concomitant]
     Indication: BENIGN PROSTATIC HYPERPLASIA
  5. ASPIRIN [Concomitant]
     Indication: CEREBRAL INFARCTION
  6. SEROQUEL [Suspect]
     Indication: RESTLESSNESS
     Route: 048
  7. MENEST [Concomitant]
     Indication: PARKINSON'S DISEASE
  8. FLIVASTATIN SODIUM [Concomitant]
     Indication: BENIGN PROSTATIC HYPERPLASIA
  9. LANSOPRAZOLE [Concomitant]
     Indication: GASTROOESOPHAGEAL REFLUX DISEASE
  10. SEROQUEL [Suspect]
     Indication: PARKINSON'S DISEASE
     Route: 048

REACTIONS (4)
  - HYPOGLYCAEMIA [None]
  - HYPOTHERMIA [None]
  - OFF LABEL USE [None]
  - HYPOALBUMINAEMIA [None]
